FAERS Safety Report 20821123 (Version 6)
Quarter: 2025Q2

REPORT INFORMATION
  Report Type: Spontaneous
  Country: US (occurrence: US)
  Receive Date: 20220512
  Receipt Date: 20250617
  Transmission Date: 20250717
  Serious: No
  Sender: PFIZER
  Company Number: US-PFIZER INC-202200259885

PATIENT
  Age: 71 Year
  Sex: Female

DRUGS (22)
  1. XELJANZ [Suspect]
     Active Substance: TOFACITINIB CITRATE
  2. AZELASTINE [Concomitant]
     Active Substance: AZELASTINE
  3. CYCLOBENZAPRINE [Concomitant]
     Active Substance: CYCLOBENZAPRINE
  4. DICLOFENAC [Concomitant]
     Active Substance: DICLOFENAC
  5. DOXAZOSIN [Concomitant]
     Active Substance: DOXAZOSIN MESYLATE
  6. GABAPENTIN [Concomitant]
     Active Substance: GABAPENTIN
  7. IMITREX [Concomitant]
     Active Substance: SUMATRIPTAN SUCCINATE
  8. LIOTHYRONINE [Concomitant]
     Active Substance: LIOTHYRONINE
  9. PILOCARPINE [Concomitant]
     Active Substance: PILOCARPINE
  10. SPIRONOLACTONE [Concomitant]
     Active Substance: SPIRONOLACTONE
  11. SYNTHROID [Concomitant]
     Active Substance: LEVOTHYROXINE SODIUM
  12. ROSUVASTATIN [Concomitant]
     Active Substance: ROSUVASTATIN
  13. TOPIRAMATE [Concomitant]
     Active Substance: TOPIRAMATE
  14. ALBUTEROL SULFATE [Concomitant]
     Active Substance: ALBUTEROL SULFATE
  15. VITAMIN D3 [Concomitant]
     Active Substance: CHOLECALCIFEROL
  16. XYZAL [Concomitant]
     Active Substance: LEVOCETIRIZINE DIHYDROCHLORIDE
  17. ALBUTEIN [Concomitant]
     Active Substance: ALBUMIN HUMAN
  18. NALTREXONE [Concomitant]
     Active Substance: NALTREXONE
  19. ALENDRONATE [Concomitant]
     Active Substance: ALENDRONATE SODIUM
  20. PANTOPRAZOLE [Concomitant]
     Active Substance: PANTOPRAZOLE
  21. SINGULAIR [Concomitant]
     Active Substance: MONTELUKAST SODIUM
  22. VITAMIN D NOS [Concomitant]
     Active Substance: CHOLECALCIFEROL\ERGOCALCIFEROL

REACTIONS (7)
  - Aphthous ulcer [Unknown]
  - Candida infection [Unknown]
  - Haemoptysis [Unknown]
  - Dysphonia [Unknown]
  - Oropharyngeal pain [Unknown]
  - Nervous system disorder [Unknown]
  - Herpes zoster [Not Recovered/Not Resolved]

NARRATIVE: CASE EVENT DATE: 20220101
